FAERS Safety Report 5684801-8 (Version None)
Quarter: 2008Q1

REPORT INFORMATION
  Report Type: 
  Country: None (occurrence: None)
  Receive Date: 20080328
  Receipt Date: 20071001
  Transmission Date: 20080703
  Serious: Yes (Hospitalization)
  Sender: FDA-Public Use
  Company Number: US-BRISTOL-MYERS SQUIBB COMPANY-13925797

PATIENT
  Age: 81 Year
  Sex: Male
  Weight: 82 kg

DRUGS (5)
  1. ERBITUX [Suspect]
     Indication: TONGUE NEOPLASM MALIGNANT STAGE UNSPECIFIED
     Route: 042
  2. SINEMET [Concomitant]
  3. PERCOCET [Concomitant]
  4. FLOMAX [Concomitant]
  5. CLONAZEPAM [Concomitant]

REACTIONS (3)
  - ELECTROCARDIOGRAM ST SEGMENT ELEVATION [None]
  - HYPERSENSITIVITY [None]
  - HYPOTENSION [None]
